FAERS Safety Report 25543284 (Version 1)
Quarter: 2025Q3

REPORT INFORMATION
  Report Type: Report from Study
  Country: KR (occurrence: KR)
  Receive Date: 20250711
  Receipt Date: 20250711
  Transmission Date: 20251020
  Serious: Yes (Other)
  Sender: JOHNSON AND JOHNSON
  Company Number: KR-JNJFOC-20250710110

PATIENT

DRUGS (3)
  1. TOLODODEKIN ALFA [Suspect]
     Active Substance: TOLODODEKIN ALFA
     Indication: Plasma cell myeloma
     Dosage: CYCLES 1 TO 3
     Route: 065
  2. VELCADE [Suspect]
     Active Substance: BORTEZOMIB
     Indication: Plasma cell myeloma
     Route: 065
  3. DEXAMETHASONE [Suspect]
     Active Substance: DEXAMETHASONE
     Indication: Plasma cell myeloma
     Route: 065

REACTIONS (16)
  - Thrombocytopenia [Unknown]
  - Anaemia [Unknown]
  - Neutropenia [Unknown]
  - Lymphopenia [Unknown]
  - Pyrexia [Unknown]
  - Neuropathy peripheral [Unknown]
  - Upper respiratory tract infection [Unknown]
  - Diarrhoea [Unknown]
  - Infusion related reaction [Unknown]
  - Pneumonia [Unknown]
  - COVID-19 [Unknown]
  - Sepsis [Unknown]
  - Rash [Unknown]
  - Constipation [Unknown]
  - Fatigue [Unknown]
  - Decreased appetite [Unknown]
